FAERS Safety Report 8095565-5 (Version None)
Quarter: 2012Q1

REPORT INFORMATION
  Report Type: 
  Country: None (occurrence: None)
  Receive Date: 20120131
  Receipt Date: 20120116
  Transmission Date: 20120608
  Serious: Yes (Other)
  Sender: FDA-Public Use
  Company Number: FR-WATSON-2012-01142

PATIENT
  Age: 55 Year
  Sex: Male

DRUGS (1)
  1. NICARDIPINE HCL [Suspect]
     Indication: PRODUCT USED FOR UNKNOWN INDICATION
     Dosage: UNK

REACTIONS (2)
  - CONDITION AGGRAVATED [None]
  - HYPOXIA [None]
